FAERS Safety Report 4861564-7 (Version None)
Quarter: 2005Q4

REPORT INFORMATION
  Report Type: 
  Country: None (occurrence: None)
  Receive Date: 20051216
  Receipt Date: 20051201
  Transmission Date: 20060501
  Serious: Yes (Other)
  Sender: FDA-Public Use
  Company Number: GB200512000225

PATIENT
  Age: 67 Year
  Sex: Female

DRUGS (2)
  1. FORTEO [Suspect]
     Dosage: 20 UG, DAILY (1/D),
     Dates: start: 20040901
  2. LEVOTHYROXINE SODIUM [Concomitant]

REACTIONS (6)
  - HYPERCALCAEMIA [None]
  - LUNG DISORDER [None]
  - NEOPLASM MALIGNANT [None]
  - SCAR [None]
  - UTERINE DISORDER [None]
  - VAGINAL DISORDER [None]
